FAERS Safety Report 25049448 (Version 1)
Quarter: 2025Q1

REPORT INFORMATION
  Report Type: Spontaneous
  Country: JP (occurrence: JP)
  Receive Date: 20250307
  Receipt Date: 20250307
  Transmission Date: 20250409
  Serious: Yes (Other)
  Sender: ASTELLAS
  Company Number: JP-PFIZER INC-PV202500026765

PATIENT
  Age: 72 Year
  Sex: Female

DRUGS (1)
  1. ENFORTUMAB VEDOTIN [Suspect]
     Active Substance: ENFORTUMAB VEDOTIN
     Indication: Ureteral neoplasm
     Route: 065

REACTIONS (3)
  - Bone marrow disorder [Unknown]
  - Blister [Unknown]
  - Rash [Unknown]
